FAERS Safety Report 8619087-5 (Version None)
Quarter: 2012Q3

REPORT INFORMATION
  Report Type: 
  Country: None (occurrence: None)
  Receive Date: 20120824
  Receipt Date: 20120822
  Transmission Date: 20120928
  Serious: Yes (Death, Other)
  Sender: FDA-Public Use
  Company Number: PHHY2012AU072596

PATIENT
  Sex: Male

DRUGS (1)
  1. ZOMETA [Suspect]
     Dosage: UNK UKN, UNK
     Dates: end: 20111201

REACTIONS (6)
  - SWELLING [None]
  - PAIN [None]
  - LOWER RESPIRATORY TRACT INFECTION [None]
  - OSTEONECROSIS OF JAW [None]
  - GINGIVAL INFECTION [None]
  - RESPIRATORY FAILURE [None]
